FAERS Safety Report 14720919 (Version 2)
Quarter: 2018Q2

REPORT INFORMATION
  Report Type: Report from Study
  Country: GB (occurrence: GB)
  Receive Date: 20180405
  Receipt Date: 20180521
  Transmission Date: 20180711
  Serious: Yes (Hospitalization)
  Sender: FDA-Public Use
  Company Number: GB-UCBSA-2018014135

PATIENT
  Age: 68 Year
  Sex: Male
  Weight: 65 kg

DRUGS (2)
  1. HYDROXYCHLOROQUINE [Concomitant]
     Active Substance: HYDROXYCHLOROQUINE
     Indication: RHEUMATOID ARTHRITIS
  2. CERTOLIZUMAB PEGOL RA [Suspect]
     Active Substance: CERTOLIZUMAB PEGOL
     Indication: RHEUMATOID ARTHRITIS
     Dosage: UNK
     Route: 058
     Dates: start: 20120126

REACTIONS (6)
  - Upper gastrointestinal haemorrhage [Unknown]
  - Urinary retention [Unknown]
  - Pneumothorax [Unknown]
  - Acute kidney injury [Unknown]
  - Duodenal ulcer haemorrhage [Unknown]
  - Subcutaneous emphysema [Unknown]

NARRATIVE: CASE EVENT DATE: 20171108
